FAERS Safety Report 8098322-9 (Version None)
Quarter: 2012Q1

REPORT INFORMATION
  Report Type: 
  Country: None (occurrence: None)
  Receive Date: 20120129
  Receipt Date: 20111001
  Transmission Date: 20120608
  Serious: No
  Sender: FDA-Public Use
  Company Number: US-ABBOTT-11P-163-0860342-00

PATIENT
  Age: 45 Year
  Sex: Female

DRUGS (8)
  1. TRAMADOL HCL [Concomitant]
     Indication: PAIN
  2. LYRICA [Concomitant]
     Indication: FIBROMYALGIA
  3. LEXAPRO [Concomitant]
     Indication: DEPRESSION
  4. VICODIN [Concomitant]
     Indication: PAIN
     Dosage: 5/500
  5. ENABLEX [Concomitant]
     Indication: URINARY INCONTINENCE
  6. SKELAXIN [Concomitant]
     Indication: MUSCLE RELAXANT THERAPY
  7. HUMIRA [Suspect]
     Indication: RHEUMATOID ARTHRITIS
     Dates: start: 20110617
  8. OMEPRAZOLE [Concomitant]
     Indication: ABDOMINAL DISCOMFORT

REACTIONS (3)
  - THROAT IRRITATION [None]
  - COUGH [None]
  - NASAL DISCOMFORT [None]
